FAERS Safety Report 4563460-1 (Version None)
Quarter: 2005Q1

REPORT INFORMATION
  Report Type: 
  Country: None (occurrence: None)
  Receive Date: 20050128
  Receipt Date: 20040607
  Transmission Date: 20050727
  Serious: No
  Sender: FDA-Public Use
  Company Number: US-GLAXOSMITHKLINE-A0513649A

PATIENT
  Age: 25 Year
  Sex: Male
  Weight: 75.2 kg

DRUGS (4)
  1. WELLBUTRIN [Suspect]
     Dosage: 100MG TWICE PER DAY
     Route: 048
     Dates: start: 20040510, end: 20040607
  2. ZYPREXA [Concomitant]
     Route: 048
  3. NEURONTIN [Concomitant]
     Dosage: 400MG TWICE PER DAY
     Route: 048
  4. COGENTIN [Concomitant]
     Route: 048

REACTIONS (2)
  - BLOOD PRESSURE INCREASED [None]
  - WEIGHT INCREASED [None]
